FAERS Safety Report 20638430 (Version 4)
Quarter: 2022Q2

REPORT INFORMATION
  Report Type: Report from Study
  Country: FR (occurrence: FR)
  Receive Date: 20220325
  Receipt Date: 20220503
  Transmission Date: 20220721
  Serious: Yes (Death, Hospitalization, Other)
  Sender: FDA-Public Use
  Company Number: FR-AMGEN-FRASP2022051140

PATIENT
  Age: 47 Year
  Sex: Female

DRUGS (1)
  1. AMG-510 [Suspect]
     Active Substance: AMG-510
     Indication: Non-small cell lung cancer metastatic
     Dosage: UNK
     Route: 065
     Dates: start: 20220302, end: 20220316

REACTIONS (2)
  - Interstitial lung disease [Recovered/Resolved]
  - Non-small cell lung cancer [Fatal]

NARRATIVE: CASE EVENT DATE: 20220101
